FAERS Safety Report 9807554 (Version 1)
Quarter: 2014Q1

REPORT INFORMATION
  Report Type: Spontaneous
  Country: US (occurrence: US)
  Receive Date: 20140110
  Receipt Date: 20140110
  Transmission Date: 20141002
  Serious: No
  Sender: FDA-Public Use
  Company Number: US-SANOFI-AVENTIS-2013SA026207

PATIENT
  Age: 59 Year
  Sex: Female
  Weight: 70 kg

DRUGS (2)
  1. PLAVIX [Suspect]
     Dosage: TAKEN TO- TWO WEEKS AGO
     Route: 048
     Dates: start: 200903
  2. ALL OTHER THERAPEUTIC PRODUCTS [Concomitant]

REACTIONS (2)
  - Hyperhidrosis [Not Recovered/Not Resolved]
  - Drug dose omission [Unknown]
